FAERS Safety Report 8780009 (Version 1)
Quarter: 2012Q4

REPORT INFORMATION
  Report Type: Spontaneous
  Country: US (occurrence: None)
  Receive Date: 20120831
  Receipt Date: 20120831
  Transmission Date: 20130627
  Serious: Yes (Other)
  Sender: FDA-Public Use
  Company Number: None

PATIENT
  Age: 58 Year
  Sex: Male
  Weight: 74.84 kg

DRUGS (2)
  1. OXYBUTYNIN CHLORIDE [Suspect]
     Indication: BLADDER DISORDER
     Dosage: 1 tablet  1 per day  po
     Route: 048
     Dates: start: 20120601, end: 20120828
  2. TAMSULOSIN HYDROCHLORIDE [Suspect]
     Dosage: 1 tablet  1 per day  po
     Route: 048
     Dates: start: 20120601, end: 20120828

REACTIONS (3)
  - Product substitution issue [None]
  - No therapeutic response [None]
  - Product quality issue [None]
